FAERS Safety Report 8502421-4 (Version None)
Quarter: 2012Q3

REPORT INFORMATION
  Report Type: 
  Country: None (occurrence: None)
  Receive Date: 20120711
  Receipt Date: 20120707
  Transmission Date: 20120928
  Serious: Yes (Other)
  Sender: FDA-Public Use
  Company Number: PHEH2012US011330

PATIENT
  Sex: Female

DRUGS (42)
  1. TEGRETOL [Suspect]
  2. REQUIP [Suspect]
  3. NEURONTIN [Suspect]
  4. DARVOCET-N 50 [Suspect]
  5. REMERON [Suspect]
  6. REGLAN [Suspect]
  7. VITAMIN B-COMPLEX, OTHER COMBINATIONS [Concomitant]
     Dosage: 1 DF, QD
     Route: 048
  8. CALTRATE +D [Concomitant]
     Dosage: 400 MG, BID
     Route: 048
  9. DEPAKOTE [Suspect]
  10. IMITREX [Suspect]
  11. ZONEGRAN [Suspect]
  12. ERYTHROMYCIN [Suspect]
  13. RITALIN [Suspect]
  14. SINEQUAN [Suspect]
  15. ELAVIL [Suspect]
  16. ADDERALL 5 [Suspect]
  17. WELLBUTRIN [Suspect]
  18. PAMELOR [Suspect]
  19. PROZAC [Suspect]
  20. BUSPAR [Suspect]
  21. LUNESTA [Suspect]
  22. ENSURE [Concomitant]
     Dosage: 1 CAN, QD
     Route: 048
  23. TRILEPTAL [Suspect]
  24. TOPAMAX [Suspect]
  25. BETA BLOCKING AGENTS [Suspect]
  26. ABILIFY [Suspect]
  27. VALIUM [Suspect]
     Indication: AGITATION
  28. STEROIDS NOS [Suspect]
  29. SEROQUEL [Suspect]
  30. MAO INHIBITORS [Suspect]
  31. TOFRANIL [Suspect]
  32. ZOLOFT [Suspect]
  33. PAXIL [Suspect]
  34. DAYTRANA [Suspect]
  35. EFFEXOR [Suspect]
  36. SKELAXIN [Suspect]
  37. ANTIDEPRESSANTS [Suspect]
  38. TIZANIDINE HYDROCHLORIDE [Suspect]
  39. DESYREL [Suspect]
  40. ZYPREXA [Suspect]
  41. ONE A DAY [Concomitant]
     Dosage: 1 DF, QD
     Route: 048
  42. ASPIRIN [Concomitant]
     Dosage: 81 MG, QD
     Route: 048

REACTIONS (12)
  - HYPERGLYCAEMIA [None]
  - CONVULSION [None]
  - DRUG INEFFECTIVE [None]
  - AGITATION [None]
  - RASH [None]
  - BIPOLAR DISORDER [None]
  - CHEST PAIN [None]
  - WEIGHT INCREASED [None]
  - NIGHTMARE [None]
  - CONFUSIONAL STATE [None]
  - TREMOR [None]
  - TOXICITY TO VARIOUS AGENTS [None]
